FAERS Safety Report 8035471-5 (Version None)
Quarter: 2012Q1

REPORT INFORMATION
  Report Type: 
  Country: None (occurrence: None)
  Receive Date: 20120110
  Receipt Date: 20120110
  Transmission Date: 20120608
  Serious: Yes (Hospitalization)
  Sender: FDA-Public Use
  Company Number: None

PATIENT
  Sex: Male

DRUGS (1)
  1. DONEPEZIL HCL [Suspect]
     Dosage: ONCE DAILY

REACTIONS (1)
  - LOSS OF CONSCIOUSNESS [None]
